FAERS Safety Report 9973113 (Version 1)
Quarter: 2014Q1

REPORT INFORMATION
  Report Type: Other
  Country: US (occurrence: US)
  Receive Date: 20140306
  Receipt Date: 20140306
  Transmission Date: 20141002
  Serious: Yes (Death)
  Sender: FDA-Public Use
  Company Number: US-FRI-1000054805

PATIENT
  Age: 27 Year
  Sex: Female

DRUGS (5)
  1. CITALOPRAM [Suspect]
  2. METHADONE [Suspect]
  3. ALPRAZOLAM [Suspect]
  4. AMPHETAMINE [Suspect]
  5. THC HOMOLOG [Suspect]

REACTIONS (2)
  - Completed suicide [Fatal]
  - Cardio-respiratory arrest [Fatal]
